FAERS Safety Report 8411907-2 (Version None)
Quarter: 2012Q2

REPORT INFORMATION
  Report Type: 
  Country: None (occurrence: None)
  Receive Date: 20120605
  Receipt Date: 20120516
  Transmission Date: 20120825
  Serious: No
  Sender: FDA-Public Use
  Company Number: US-AMGEN-USASP2012031018

PATIENT
  Age: 55 Year
  Sex: Female

DRUGS (2)
  1. ENBREL [Suspect]
     Indication: RHEUMATOID ARTHRITIS
     Dosage: 50 MG, QWK
     Dates: start: 20120515
  2. TREXALL [Concomitant]
     Dosage: UNK

REACTIONS (5)
  - VERTIGO [None]
  - HEADACHE [None]
  - TREMOR [None]
  - NAUSEA [None]
  - SENSATION OF HEAVINESS [None]
